FAERS Safety Report 17653144 (Version 1)
Quarter: 2020Q2

REPORT INFORMATION
  Report Type: Spontaneous
  Country: US (occurrence: US)
  Receive Date: 20200409
  Receipt Date: 20200409
  Transmission Date: 20200713
  Serious: Yes (Other)
  Sender: FDA-Public Use
  Company Number: US-PURDUE PHARMA-USA-2020-0151296

PATIENT
  Sex: Female

DRUGS (5)
  1. OXYCONTIN [Suspect]
     Active Substance: OXYCODONE HYDROCHLORIDE
     Indication: PRODUCT USED FOR UNKNOWN INDICATION
     Route: 048
  2. OPANA [Suspect]
     Active Substance: OXYMORPHONE HYDROCHLORIDE
     Indication: PRODUCT USED FOR UNKNOWN INDICATION
     Route: 065
  3. VALIUM [Suspect]
     Active Substance: DIAZEPAM
     Indication: PRODUCT USED FOR UNKNOWN INDICATION
     Route: 065
  4. LYRICA [Suspect]
     Active Substance: PREGABALIN
     Indication: PRODUCT USED FOR UNKNOWN INDICATION
     Dosage: UNK, TID
     Route: 048
  5. DEXEDRINE [Suspect]
     Active Substance: DEXTROAMPHETAMINE SULFATE
     Indication: PRODUCT USED FOR UNKNOWN INDICATION
     Route: 065

REACTIONS (40)
  - Tooth loss [Unknown]
  - Coeliac disease [Unknown]
  - Gingival swelling [Unknown]
  - Headache [Unknown]
  - Anxiety [Unknown]
  - Insomnia [Unknown]
  - Drug hypersensitivity [Unknown]
  - Swelling [Unknown]
  - Personality change [Unknown]
  - Feeling abnormal [Unknown]
  - Fall [Unknown]
  - Diabetes mellitus [Unknown]
  - Middle insomnia [Unknown]
  - Mouth swelling [Unknown]
  - Renal injury [Unknown]
  - Body height decreased [Unknown]
  - Swollen tongue [Unknown]
  - Panic attack [Unknown]
  - Malaise [Unknown]
  - Loss of personal independence in daily activities [Unknown]
  - Cerebral disorder [Unknown]
  - Anger [Unknown]
  - Hypersomnia [Unknown]
  - Muscle disorder [Unknown]
  - Musculoskeletal pain [Unknown]
  - Gingival disorder [Unknown]
  - Pelvic fracture [Unknown]
  - Intervertebral disc injury [Unknown]
  - Swelling face [Unknown]
  - Vision blurred [Unknown]
  - Myalgia [Unknown]
  - Depression [Unknown]
  - Pain [Unknown]
  - Hypophagia [Unknown]
  - Unevaluable event [Unknown]
  - Feeling of body temperature change [Unknown]
  - Attention deficit hyperactivity disorder [Unknown]
  - Dyslexia [Unknown]
  - Urinary sediment [Unknown]
  - Gait disturbance [Unknown]
